FAERS Safety Report 20147194 (Version 1)
Quarter: 2021Q4

REPORT INFORMATION
  Report Type: Spontaneous
  Country: US (occurrence: US)
  Receive Date: 20211203
  Receipt Date: 20211203
  Transmission Date: 20220303
  Serious: No
  Sender: FDA-Public Use
  Company Number: US-SANOFI-00866682

PATIENT
  Sex: Male

DRUGS (1)
  1. KEVZARA [Suspect]
     Active Substance: SARILUMAB
     Dosage: 150 MG

REACTIONS (5)
  - Dyspnoea [Unknown]
  - Fatigue [Unknown]
  - Prostatic disorder [Unknown]
  - Urinary tract infection [Unknown]
  - Dysuria [Unknown]
